FAERS Safety Report 9660166 (Version 1)
Quarter: 2013Q4

REPORT INFORMATION
  Report Type: Spontaneous
  Country: GB (occurrence: GB)
  Receive Date: 20131031
  Receipt Date: 20131031
  Transmission Date: 20140711
  Serious: Yes (Other)
  Sender: FDA-Public Use
  Company Number: GB-SA-2013SA107228

PATIENT
  Age: 70 Year
  Sex: Male
  Weight: 70 kg

DRUGS (1)
  1. INDAPAMIDE [Suspect]
     Indication: PROPHYLAXIS
     Route: 048

REACTIONS (2)
  - Convulsion [Recovered/Resolved]
  - Hyponatraemia [Recovered/Resolved]
